FAERS Safety Report 11713903 (Version 12)
Quarter: 2018Q1

REPORT INFORMATION
  Report Type: Spontaneous
  Country: US (occurrence: US)
  Receive Date: 20151109
  Receipt Date: 20180209
  Transmission Date: 20180508
  Serious: Yes (Death, Congenital Anomaly, Other)
  Sender: FDA-Public Use
  Company Number: PHEH2015US022915

PATIENT
  Sex: Male

DRUGS (2)
  1. ZOFRAN [Suspect]
     Active Substance: ONDANSETRON HYDROCHLORIDE
     Indication: FOETAL EXPOSURE DURING PREGNANCY
     Dosage: MOTHER DOSE: 4 MG TO 8 MG, BID
     Route: 064
  2. ONDANSETRON HYDROCHLORIDE. [Suspect]
     Active Substance: ONDANSETRON HYDROCHLORIDE
     Indication: FOETAL EXPOSURE DURING PREGNANCY
     Dosage: MOTHER DOSE: 4 TO 8 MG, BID
     Route: 064

REACTIONS (20)
  - Congenital anomaly [Unknown]
  - Meconium in amniotic fluid [Unknown]
  - Pain [Unknown]
  - Patent ductus arteriosus [Unknown]
  - Univentricular heart [Unknown]
  - Heart disease congenital [Unknown]
  - Systolic dysfunction [Unknown]
  - Sinus tachycardia [Unknown]
  - Hypoplastic left heart syndrome [Fatal]
  - Shoulder dystocia [Unknown]
  - Dilatation ventricular [Unknown]
  - Foetal exposure during pregnancy [Unknown]
  - Neonatal respiratory failure [Unknown]
  - Neonatal respiratory distress [Unknown]
  - Neonatal tachypnoea [Unknown]
  - Anxiety [Unknown]
  - Left-to-right cardiac shunt [Unknown]
  - Convulsion neonatal [Unknown]
  - Injury [Unknown]
  - Emotional distress [Unknown]
